FAERS Safety Report 12631677 (Version 2)
Quarter: 2016Q3

REPORT INFORMATION
  Report Type: Spontaneous
  Country: US (occurrence: US)
  Receive Date: 20160808
  Receipt Date: 20160808
  Transmission Date: 20161109
  Serious: No
  Sender: FDA-Public Use
  Company Number: US-BEH-2015055291

PATIENT
  Sex: Female
  Weight: 63 kg

DRUGS (29)
  1. ACETAMINOPHEN. [Concomitant]
     Active Substance: ACETAMINOPHEN
  2. AMARYL [Concomitant]
     Active Substance: GLIMEPIRIDE
  3. RITALIN [Concomitant]
     Active Substance: METHYLPHENIDATE HYDROCHLORIDE
  4. DOXYCYCLINE. [Concomitant]
     Active Substance: DOXYCYCLINE
  5. HUMALOG [Concomitant]
     Active Substance: INSULIN LISPRO
  6. GLUCOPHAGE [Concomitant]
     Active Substance: METFORMIN HYDROCHLORIDE
  7. WELCHOL [Concomitant]
     Active Substance: COLESEVELAM HYDROCHLORIDE
  8. HUMIRA [Concomitant]
     Active Substance: ADALIMUMAB
  9. HIZENTRA [Suspect]
     Active Substance: HUMAN IMMUNOGLOBULIN G
     Indication: IMMUNODEFICIENCY COMMON VARIABLE
     Route: 058
  10. SINEMET [Concomitant]
     Active Substance: CARBIDOPA\LEVODOPA
  11. ZITHROMAX [Concomitant]
     Active Substance: AZITHROMYCIN DIHYDRATE
  12. FLINSTONES IRON [Concomitant]
  13. HYDROCODONE-HOMATHROPINE [Concomitant]
  14. TRICOR [Concomitant]
     Active Substance: FENOFIBRATE
  15. ZETIA [Concomitant]
     Active Substance: EZETIMIBE
  16. FEMRING [Concomitant]
     Active Substance: ESTRADIOL ACETATE
  17. PREDNISONE. [Concomitant]
     Active Substance: PREDNISONE
  18. NEXIUM [Concomitant]
     Active Substance: ESOMEPRAZOLE MAGNESIUM
  19. LMX [Concomitant]
     Active Substance: LIDOCAINE
  20. SOTALOL. [Concomitant]
     Active Substance: SOTALOL
  21. FOLIC ACID. [Concomitant]
     Active Substance: FOLIC ACID
  22. EFFEXOR XR [Concomitant]
     Active Substance: VENLAFAXINE HYDROCHLORIDE
  23. DIPHENHYDRAMINE. [Concomitant]
     Active Substance: DIPHENHYDRAMINE
  24. EPIPEN [Concomitant]
     Active Substance: EPINEPHRINE
  25. CIPROFLOXACIN. [Concomitant]
     Active Substance: CIPROFLOXACIN
  26. LANTUS [Concomitant]
     Active Substance: INSULIN GLARGINE
  27. HIZENTRA [Suspect]
     Active Substance: HUMAN IMMUNOGLOBULIN G
  28. KEFLEX [Concomitant]
     Active Substance: CEPHALEXIN
  29. RESTORIL [Concomitant]
     Active Substance: TEMAZEPAM

REACTIONS (1)
  - Sinusitis [Unknown]
